FAERS Safety Report 23565163 (Version 1)
Quarter: 2024Q1

REPORT INFORMATION
  Report Type: Spontaneous
  Country: US (occurrence: US)
  Receive Date: 20240226
  Receipt Date: 20240226
  Transmission Date: 20240409
  Serious: Yes (Other)
  Sender: FDA-Public Use
  Company Number: US-PFIZER INC-PV202400025577

PATIENT
  Age: 73 Year
  Sex: Female
  Weight: 81.179 kg

DRUGS (5)
  1. IBRANCE [Suspect]
     Active Substance: PALBOCICLIB
     Indication: Breast cancer female
     Dosage: PALBOCICLIB 125 MG PO DAY 1-21
     Route: 048
     Dates: start: 20200707
  2. IBRANCE [Suspect]
     Active Substance: PALBOCICLIB
     Indication: Bone cancer
     Dosage: 100 MG, CYCLIC
     Route: 048
     Dates: start: 20210204
  3. IBRANCE [Suspect]
     Active Substance: PALBOCICLIB
     Dosage: 75 MG, CYCLIC
     Route: 048
     Dates: start: 20221002
  4. ARIMIDEX [Suspect]
     Active Substance: ANASTROZOLE
     Indication: Breast cancer female
     Dosage: UNK
     Dates: start: 20200707
  5. ARIMIDEX [Suspect]
     Active Substance: ANASTROZOLE
     Indication: Bone cancer

REACTIONS (1)
  - Neutropenia [Unknown]
